FAERS Safety Report 21830700 (Version 2)
Quarter: 2023Q1

REPORT INFORMATION
  Report Type: Report from Study
  Country: US (occurrence: US)
  Receive Date: 20230106
  Receipt Date: 20230109
  Transmission Date: 20230418
  Serious: Yes (Hospitalization)
  Sender: FDA-Public Use
  Company Number: US-ABBVIE-4258246

PATIENT
  Sex: Female

DRUGS (4)
  1. CARBIDOPA\LEVODOPA [Suspect]
     Active Substance: CARBIDOPA\LEVODOPA
     Indication: Product used for unknown indication
     Route: 050
     Dates: start: 20221102
  2. CARBIDOPA\LEVODOPA [Suspect]
     Active Substance: CARBIDOPA\LEVODOPA
     Route: 050
     Dates: end: 2022
  3. CARBIDOPA\LEVODOPA [Concomitant]
     Active Substance: CARBIDOPA\LEVODOPA
     Indication: Product used for unknown indication
     Route: 048
  4. MORPHINE [Concomitant]
     Active Substance: MORPHINE
     Indication: Pain

REACTIONS (13)
  - Obstruction gastric [Recovered/Resolved]
  - Contusion [Not Recovered/Not Resolved]
  - Gastritis [Unknown]
  - Dyspepsia [Recovered/Resolved]
  - Device dislocation [Not Recovered/Not Resolved]
  - Burning sensation [Unknown]
  - Gastric pH decreased [Unknown]
  - Device leakage [Not Recovered/Not Resolved]
  - Abdominal pain upper [Recovered/Resolved]
  - Device dislocation [Not Recovered/Not Resolved]
  - Device issue [Not Recovered/Not Resolved]
  - Abdominal discomfort [Recovered/Resolved]
  - Abdominal wall oedema [Recovered/Resolved]

NARRATIVE: CASE EVENT DATE: 20220101
